FAERS Safety Report 6013855-4 (Version None)
Quarter: 2008Q4

REPORT INFORMATION
  Report Type: 
  Country: None (occurrence: None)
  Receive Date: 20081218
  Receipt Date: 20081218
  Transmission Date: 20090506
  Serious: Yes (Other)
  Sender: FDA-Public Use
  Company Number: None

PATIENT
  Age: 38 Year
  Sex: Female
  Weight: 83.9154 kg

DRUGS (1)
  1. AMPHETAMINES [Suspect]
     Indication: ATTENTION DEFICIT/HYPERACTIVITY DISORDER
     Dosage: 1 TABLET 3 TIMES A DAY PO
     Route: 048
     Dates: start: 20081212, end: 20081217

REACTIONS (7)
  - DYSPHAGIA [None]
  - DYSTONIA [None]
  - OEDEMA MOUTH [None]
  - ORAL PAIN [None]
  - PHARYNGEAL OEDEMA [None]
  - STOMATITIS [None]
  - THROAT TIGHTNESS [None]
